FAERS Safety Report 18668352 (Version 4)
Quarter: 2021Q1

REPORT INFORMATION
  Report Type: Other
  Country: US (occurrence: US)
  Receive Date: 20201228
  Receipt Date: 20210105
  Transmission Date: 20210419
  Serious: Yes (Other)
  Sender: FDA-Public Use
  Company Number: US-ROCHE-2737129

PATIENT
  Sex: Female

DRUGS (16)
  1. ACTEMRA [Suspect]
     Active Substance: TOCILIZUMAB
  2. IMURAN [Concomitant]
     Active Substance: AZATHIOPRINE
     Dosage: TAKE 2 TAB BY MOUTH ONCE DAILY
     Route: 048
  3. DULCOLAX (BISACODYL) [Concomitant]
     Active Substance: BISACODYL
     Indication: CONSTIPATION
     Dosage: TAKE 5 MG BY MOUTH ONCE DAILY AS NEEDED FOR CONSTIPATION
     Route: 048
  4. ATARAX [Concomitant]
     Active Substance: HYDROXYZINE HYDROCHLORIDE
     Dosage: TAKE 1 TABLET BY MOUTH 3 TIMES DAILY AS NEEDED
     Route: 048
  5. ACTEMRA [Suspect]
     Active Substance: TOCILIZUMAB
  6. ACTEMRA [Suspect]
     Active Substance: TOCILIZUMAB
  7. ACTEMRA [Suspect]
     Active Substance: TOCILIZUMAB
     Indication: GIANT CELL ARTERITIS
     Route: 058
  8. ACTEMRA [Suspect]
     Active Substance: TOCILIZUMAB
  9. CALCIUM CARBONATE. [Concomitant]
     Active Substance: CALCIUM CARBONATE
     Dosage: TAKE 2 TABLETS BY MOUTH DAILY WITH FOOD
     Route: 048
  10. DRISDOL [Concomitant]
     Active Substance: ERGOCALCIFEROL
     Dosage: (50000 UT)
     Route: 048
  11. ACTEMRA [Suspect]
     Active Substance: TOCILIZUMAB
     Route: 058
  12. TYLENOL [Concomitant]
     Active Substance: ACETAMINOPHEN
     Dosage: TAKE 1000 MG BY MOUTH EVERY 6 HOURS AS NEEDED FOR FEVER OR PAIN MAXIMUM ALLOWABLE ACETAMINOPHEN AMOU
     Route: 048
  13. MICRO?K [Concomitant]
     Active Substance: POTASSIUM CHLORIDE
     Dosage: TAKE 1 CAPSULE BY MOUTH ONCE DAILY
     Route: 048
  14. ASPIRIN. [Concomitant]
     Active Substance: ASPIRIN
     Route: 048
  15. PROTONIX [Concomitant]
     Active Substance: PANTOPRAZOLE SODIUM
     Dosage: TAKE 1 TABLET BY MOUTH ONCE DAILY
     Route: 048
  16. DELTASONE [Concomitant]
     Active Substance: PREDNISONE
     Dosage: TAKE 2 TABLETS BY MOUTH ONCE DAILY
     Route: 048

REACTIONS (3)
  - Blindness [Unknown]
  - Muscular weakness [Unknown]
  - Arthralgia [Unknown]
